FAERS Safety Report 7417894-8 (Version None)
Quarter: 2011Q2

REPORT INFORMATION
  Report Type: 
  Country: None (occurrence: None)
  Receive Date: 20110415
  Receipt Date: 20101215
  Transmission Date: 20111010
  Serious: Yes (Other)
  Sender: FDA-Public Use
  Company Number: US-BAYER-201030576NA

PATIENT
  Age: 40 Year
  Sex: Female
  Weight: 63.5 kg

DRUGS (4)
  1. YASMIN [Suspect]
     Indication: VAGINAL HAEMORRHAGE
     Dosage: UNK UNK, UNK
     Route: 048
     Dates: start: 20050601, end: 20100701
  2. IBUPROFEN [Concomitant]
  3. OCELLA [Suspect]
     Indication: VAGINAL HAEMORRHAGE
     Dosage: UNK UNK, UNK
     Route: 048
     Dates: start: 20050601, end: 20100701
  4. YAZ [Suspect]
     Indication: VAGINAL HAEMORRHAGE
     Dosage: UNK UNK, UNK
     Route: 048
     Dates: start: 20050601, end: 20100701

REACTIONS (2)
  - CHOLECYSTITIS CHRONIC [None]
  - GALLBLADDER DISORDER [None]
